FAERS Safety Report 5505268-6 (Version None)
Quarter: 2007Q4

REPORT INFORMATION
  Report Type: 
  Country: None (occurrence: None)
  Receive Date: 20071102
  Receipt Date: 20071019
  Transmission Date: 20080405
  Serious: Yes (Other)
  Sender: FDA-Public Use
  Company Number: US-RANBAXY-2007RR-10915

PATIENT

DRUGS (2)
  1. BISACODYL [Suspect]
     Indication: LAXATIVE SUPPORTIVE CARE
  2. POLYETHYLENE GLYCOL [Suspect]
     Indication: LAXATIVE SUPPORTIVE CARE

REACTIONS (1)
  - COLITIS ISCHAEMIC [None]
